FAERS Safety Report 14228802 (Version 1)
Quarter: 2017Q4

REPORT INFORMATION
  Report Type: Spontaneous
  Country: US (occurrence: None)
  Receive Date: 20171124
  Receipt Date: 20171124
  Transmission Date: 20180321
  Serious: Yes (Life-Threatening, Hospitalization)
  Sender: FDA-Public Use
  Company Number: None

PATIENT
  Age: 79 Year
  Sex: Male
  Weight: 77.93 kg

DRUGS (1)
  1. PROTAMINE SULFATE. [Suspect]
     Active Substance: PROTAMINE SULFATE
     Indication: CARDIOVASCULAR DISORDER
     Dates: start: 20171113, end: 20171113

REACTIONS (4)
  - Anaphylactic reaction [None]
  - Pulmonary hypertension [None]
  - Right ventricular failure [None]
  - Circulatory collapse [None]

NARRATIVE: CASE EVENT DATE: 20171113
